FAERS Safety Report 10651273 (Version 6)
Quarter: 2022Q2

REPORT INFORMATION
  Report Type: Spontaneous
  Country: GB (occurrence: GB)
  Receive Date: 20141215
  Receipt Date: 20220506
  Transmission Date: 20220721
  Serious: Yes (Other)
  Sender: FDA-Public Use
  Company Number: GB-AUROBINDO-AUR-APL-2011-01213

PATIENT
  Age: 24 Year
  Sex: Male
  Weight: 88 kg

DRUGS (10)
  1. CITALOPRAM HYDROBROMIDE [Suspect]
     Active Substance: CITALOPRAM HYDROBROMIDE
     Indication: Obsessive-compulsive disorder
     Dosage: 20 MILLIGRAM, ONCE A DAY(INITIALLY 20MG)
     Route: 065
     Dates: start: 2007
  2. CITALOPRAM HYDROBROMIDE [Suspect]
     Active Substance: CITALOPRAM HYDROBROMIDE
     Dosage: 20 MILLIGRAM, ONCE A DAY
     Route: 065
     Dates: start: 200711
  3. CITALOPRAM HYDROBROMIDE [Suspect]
     Active Substance: CITALOPRAM HYDROBROMIDE
     Dosage: 40 MILLIGRAM, ONCE A DAY
     Dates: end: 2008
  4. CITALOPRAM HYDROBROMIDE [Suspect]
     Active Substance: CITALOPRAM HYDROBROMIDE
     Dosage: 40 MILLIGRAM (QD)
     Route: 065
     Dates: start: 200812, end: 200901
  5. CITALOPRAM HYDROBROMIDE [Suspect]
     Active Substance: CITALOPRAM HYDROBROMIDE
     Dosage: 40 MG,ONCE A DAY,
     Route: 065
     Dates: start: 200812, end: 20090120
  6. CITALOPRAM HYDROBROMIDE [Suspect]
     Active Substance: CITALOPRAM HYDROBROMIDE
     Dosage: 20 MG,ONCE A DAY (20 MILLIGRAM DAILY)
     Route: 065
     Dates: start: 20081227
  7. LORAZEPAM [Concomitant]
     Active Substance: LORAZEPAM
     Indication: Dizziness
     Dosage: 3 MILLIGRAM, ONCE A DAY
     Route: 048
     Dates: start: 20070622, end: 20100430
  8. LORAZEPAM [Concomitant]
     Active Substance: LORAZEPAM
     Indication: Anxiety
     Dosage: 1.5 MILLIGRAM, ONCE A DAY
     Route: 048
     Dates: start: 20100430
  9. LORAZEPAM [Concomitant]
     Active Substance: LORAZEPAM
     Indication: Presyncope
     Dosage: UNK, ONCE A DAY
     Route: 048
  10. FLUVOXAMINE [Concomitant]
     Active Substance: FLUVOXAMINE
     Indication: Dizziness
     Dosage: UNK
     Route: 065

REACTIONS (25)
  - Libido decreased [Not Recovered/Not Resolved]
  - Premature ejaculation [Recovered/Resolved]
  - Orgasmic sensation decreased [Recovering/Resolving]
  - Sexual dysfunction [Not Recovered/Not Resolved]
  - Depression [Not Recovered/Not Resolved]
  - Depressed mood [Not Recovered/Not Resolved]
  - Headache [Recovered/Resolved]
  - Genital paraesthesia [Not Recovered/Not Resolved]
  - Discomfort [Unknown]
  - Quality of life decreased [Unknown]
  - Mental disorder [Unknown]
  - Genital hypoaesthesia [Not Recovered/Not Resolved]
  - Suicide attempt [Unknown]
  - Loss of libido [Not Recovered/Not Resolved]
  - Anorgasmia [Not Recovered/Not Resolved]
  - Self-injurious ideation [Not Recovered/Not Resolved]
  - Emotional disorder [Not Recovered/Not Resolved]
  - Intentional self-injury [Recovered/Resolved]
  - Erectile dysfunction [Not Recovered/Not Resolved]
  - Sexual relationship change [Not Recovered/Not Resolved]
  - Semen volume decreased [Not Recovered/Not Resolved]
  - Suicidal ideation [Recovered/Resolved]
  - Genital pain [Not Recovered/Not Resolved]
  - Migraine [Recovered/Resolved]
  - Off label use [Unknown]

NARRATIVE: CASE EVENT DATE: 20070101
